FAERS Safety Report 8238055-9 (Version None)
Quarter: 2012Q1

REPORT INFORMATION
  Report Type: 
  Country: None (occurrence: None)
  Receive Date: 20120327
  Receipt Date: 20120305
  Transmission Date: 20120608
  Serious: Yes (Disabling, Other)
  Sender: FDA-Public Use
  Company Number: US-GLAXOSMITHKLINE-A0968629A

PATIENT
  Age: 50 Year
  Sex: Female
  Weight: 77.3 kg

DRUGS (1)
  1. VALTREX [Suspect]
     Indication: GENITAL HERPES
     Dosage: 1G PER DAY
     Route: 048
     Dates: start: 20120301, end: 20120302

REACTIONS (1)
  - URINARY RETENTION [None]
